FAERS Safety Report 8960115 (Version 1)
Quarter: 2012Q4

REPORT INFORMATION
  Report Type: 
  Country: US (occurrence: US)
  Receive Date: 20121212
  Receipt Date: 20121212
  Transmission Date: 20130627
  Serious: No
  Sender: FDA-Public Use
  Company Number: US-MYLANLABS-2012S1017695

PATIENT
  Age: 65 Year
  Sex: Female
  Weight: 61.24 kg

DRUGS (3)
  1. CLOPIDOGREL TABLETS USP [Suspect]
     Route: 048
     Dates: start: 20120606
  2. SYNTHROID [Concomitant]
     Indication: THYROID DISORDER
     Route: 048
  3. RANITIDINE [Concomitant]
     Indication: HYPERSENSITIVITY
     Route: 048

REACTIONS (2)
  - Oropharyngeal pain [Not Recovered/Not Resolved]
  - Dysphonia [Not Recovered/Not Resolved]
